FAERS Safety Report 13670462 (Version 3)
Quarter: 2017Q3

REPORT INFORMATION
  Report Type: Report from Study
  Country: US (occurrence: US)
  Receive Date: 20170620
  Receipt Date: 20170902
  Transmission Date: 20171127
  Serious: No
  Sender: FDA-Public Use
  Company Number: PHEH2017US018676

PATIENT
  Age: 38 Year
  Sex: Male

DRUGS (2)
  1. COSENTYX [Suspect]
     Active Substance: SECUKINUMAB
     Indication: PSORIASIS
     Dosage: 300 MG, QW
     Route: 058
     Dates: start: 201705
  2. COSENTYX [Suspect]
     Active Substance: SECUKINUMAB
     Indication: PSORIATIC ARTHROPATHY
     Dosage: 300 MG, QW
     Route: 058
     Dates: start: 20170614

REACTIONS (11)
  - Oral disorder [Recovered/Resolved]
  - Oesophagitis [Not Recovered/Not Resolved]
  - Pharyngeal oedema [Unknown]
  - Nausea [Recovered/Resolved]
  - Tongue disorder [Unknown]
  - Dysphagia [Recovered/Resolved]
  - Erythema [Unknown]
  - Ageusia [Unknown]
  - Hypophagia [Unknown]
  - Aptyalism [Unknown]
  - Vomiting [Recovered/Resolved]

NARRATIVE: CASE EVENT DATE: 20170601
